FAERS Safety Report 5126042-9 (Version None)
Quarter: 2006Q4

REPORT INFORMATION
  Report Type: 
  Country: None (occurrence: None)
  Receive Date: 20061010
  Receipt Date: 20061010
  Transmission Date: 20070319
  Serious: Yes (Hospitalization)
  Sender: FDA-Public Use
  Company Number: None

PATIENT
  Sex: Male
  Weight: 31.2 kg

DRUGS (1)
  1. ZOLOFT [Suspect]
     Indication: ABNORMAL BEHAVIOUR
     Dosage: 50 MG -1/2 TABLET-   EVERY DAY  PO
     Route: 048
     Dates: start: 20060921, end: 20060921

REACTIONS (5)
  - CONFUSIONAL STATE [None]
  - DISORIENTATION [None]
  - DYSTONIA [None]
  - HYPERTHERMIA [None]
  - RHABDOMYOLYSIS [None]
